FAERS Safety Report 23915786 (Version 1)
Quarter: 2024Q2

REPORT INFORMATION
  Report Type: Spontaneous
  Country: US (occurrence: US)
  Receive Date: 20240529
  Receipt Date: 20240529
  Transmission Date: 20240716
  Serious: Yes (Hospitalization, Other)
  Sender: FDA-Public Use
  Company Number: US-FreseniusKabi-FK202408442

PATIENT
  Age: 68 Year
  Sex: Female

DRUGS (3)
  1. KETAMINE [Suspect]
     Active Substance: KETAMINE
     Indication: Anaesthesia
     Dosage: FORM OF ADMIN-INFUSION
  2. PROPOFOL [Concomitant]
     Active Substance: PROPOFOL
     Indication: Anaesthesia
     Dosage: FORM OF ADMIN-INFUSION
  3. PROPOFOL [Concomitant]
     Active Substance: PROPOFOL

REACTIONS (1)
  - Arteriospasm coronary [Recovering/Resolving]
